FAERS Safety Report 4907103-3 (Version None)
Quarter: 2006Q1

REPORT INFORMATION
  Report Type: 
  Country: None (occurrence: None)
  Receive Date: 20060206
  Receipt Date: 20060125
  Transmission Date: 20060701
  Serious: Yes (Death)
  Sender: FDA-Public Use
  Company Number: 2006012962

PATIENT
  Age: 71 Year
  Sex: Male

DRUGS (22)
  1. UNASYN [Suspect]
     Indication: ILL-DEFINED DISORDER
     Dosage: INTRAVENOUS
     Route: 042
     Dates: start: 20040723, end: 20040726
  2. CEFAZOLIN [Suspect]
     Indication: ILL-DEFINED DISORDER
     Dosage: INTRAVENOUS
     Route: 042
     Dates: start: 20040627, end: 20040706
  3. RIFADIN [Concomitant]
  4. ISONIAZID [Concomitant]
  5. ESANBUTOL (ETHAMBUTOL) [Concomitant]
  6. BASEN (VOGLIBOSE) [Concomitant]
  7. EUGLUCON (GLIBENCLAMIDE) [Concomitant]
  8. DOPAMINE HCL [Concomitant]
  9. DOBUTREX [Concomitant]
  10. MIDAZOLAM HCL [Concomitant]
  11. LEPETAN (BUPRENORPHINE HYDROCHLORIDE) [Concomitant]
  12. FUTHAN (NAFAMOSTAT MESILATE) [Concomitant]
  13. ELASPOL (SIVELESTAT) [Concomitant]
  14. DIPRIVAN [Concomitant]
  15. NORADRENALINE (NOREPINEPHRINE) [Concomitant]
  16. OMEPRAZOLE [Concomitant]
  17. GENTACIN (GENTAMICIN SULFATE) [Concomitant]
  18. NEO-MINOPHAGEN C (GLYCYRRHIZIC ACID, AMMONIUM SALT) [Concomitant]
  19. SULPERAZON (CEFOPERAZONE, SULBACTAM) [Concomitant]
  20. SAXIZON (HYDROCORTISONE SODIUM SUCCINATE) [Concomitant]
  21. BISOLVON (BROMHEXINE HYDROCHLORIDE) [Concomitant]
  22. ALBUMIN ^BEHRING^ (ALBUMIN NORMAL HUMAN SERUM) [Concomitant]

REACTIONS (9)
  - ACUTE MYOCARDIAL INFARCTION [None]
  - CARDIAC FAILURE [None]
  - CORONARY ARTERY STENOSIS [None]
  - GASTRIC ULCER HAEMORRHAGE [None]
  - GENERAL PHYSICAL HEALTH DETERIORATION [None]
  - MULTI-ORGAN FAILURE [None]
  - RENAL FAILURE [None]
  - SEPSIS [None]
  - TOXIC EPIDERMAL NECROLYSIS [None]
